FAERS Safety Report 25346064 (Version 2)
Quarter: 2025Q2

REPORT INFORMATION
  Report Type: Report from Study
  Country: US (occurrence: US)
  Receive Date: 20250522
  Receipt Date: 20250602
  Transmission Date: 20250716
  Serious: Yes (Hospitalization)
  Sender: ACADIA PHARMACEUTICALS
  Company Number: US-ACADIA PHARMACEUTICALS INC.-ACA-2025-TRF-006064

PATIENT
  Age: 21 Year
  Sex: Female
  Weight: 38.5 kg

DRUGS (4)
  1. DAYBUE [Suspect]
     Active Substance: TROFINETIDE
     Indication: Rett syndrome
     Dosage: 40 MILLILITER, BID
     Dates: start: 202405
  2. EPIDIOLEX [Concomitant]
     Active Substance: CANNABIDIOL
  3. VIMPAT [Concomitant]
     Active Substance: LACOSAMIDE
  4. VALTOCO [Concomitant]
     Active Substance: DIAZEPAM

REACTIONS (3)
  - Gastrooesophageal reflux disease [Recovered/Resolved]
  - Haemoptysis [Recovered/Resolved]
  - Underdose [Unknown]

NARRATIVE: CASE EVENT DATE: 20250513
